FAERS Safety Report 7042281-4 (Version None)
Quarter: 2010Q4

REPORT INFORMATION
  Report Type: 
  Country: None (occurrence: None)
  Receive Date: 20101013
  Receipt Date: 20091103
  Transmission Date: 20110411
  Serious: No
  Sender: FDA-Public Use
  Company Number: US-ASTRAZENECA-2009SE24217

PATIENT
  Age: 90 Year
  Sex: Female
  Weight: 45.4 kg

DRUGS (10)
  1. SYMBICORT [Suspect]
     Indication: CHRONIC OBSTRUCTIVE PULMONARY DISEASE
     Dosage: 640 MCG
     Route: 055
     Dates: start: 20091001
  2. HYDROCHLOROTHIAZIDE [Concomitant]
     Indication: BLOOD PRESSURE
  3. CLONIDINE [Concomitant]
  4. SYNTHROID [Concomitant]
  5. ASCORBIC ACID [Concomitant]
  6. VITAMIN D [Concomitant]
     Dosage: 10,000 UNITS
  7. MAGNESIUM [Concomitant]
  8. RANITIDINE [Concomitant]
  9. MIRTAZAPINE [Concomitant]
  10. XALATAN [Concomitant]
     Indication: GLAUCOMA

REACTIONS (3)
  - CHEST DISCOMFORT [None]
  - COUGH [None]
  - DRUG DOSE OMISSION [None]
